FAERS Safety Report 12160227 (Version 1)
Quarter: 2016Q1

REPORT INFORMATION
  Report Type: Spontaneous
  Country: US (occurrence: US)
  Receive Date: 20160308
  Receipt Date: 20160308
  Transmission Date: 20160526
  Serious: No
  Sender: FDA-Public Use
  Company Number: US-SMITH AND NEPHEW, INC-2015SMT00069

PATIENT
  Sex: Female
  Weight: 58.96 kg

DRUGS (2)
  1. ERTAPENEM [Concomitant]
     Active Substance: ERTAPENEM
     Dosage: 500 MG, 1X/DAY
     Route: 042
     Dates: start: 201503
  2. COLLAGENASE SANTYL [Suspect]
     Active Substance: COLLAGENASE CLOSTRIDIUM HISTOLYTICUM
     Indication: DECUBITUS ULCER
     Dosage: UNK, AS NEEDED
     Dates: start: 20150320

REACTIONS (1)
  - Application site haemorrhage [Unknown]

NARRATIVE: CASE EVENT DATE: 2015
